FAERS Safety Report 10236853 (Version 2)
Quarter: 2014Q2

REPORT INFORMATION
  Report Type: Spontaneous
  Country: CN (occurrence: CN)
  Receive Date: 20140613
  Receipt Date: 20140613
  Transmission Date: 20141212
  Serious: Yes (Other)
  Sender: FDA-Public Use
  Company Number: CN-PFIZER INC-2014163094

PATIENT
  Sex: 0

DRUGS (1)
  1. SOLU-MEDROL [Suspect]

REACTIONS (1)
  - Gastrointestinal haemorrhage [Unknown]
